FAERS Safety Report 19607650 (Version 1)
Quarter: 2021Q3

REPORT INFORMATION
  Report Type: Report from Study
  Country: FR (occurrence: FR)
  Receive Date: 20210726
  Receipt Date: 20210726
  Transmission Date: 20211014
  Serious: Yes (Other)
  Sender: FDA-Public Use
  Company Number: FR-CHIESI-2021CHF03598

PATIENT
  Age: 0 Day
  Sex: Male
  Weight: 3.7 kg

DRUGS (1)
  1. CUROSURF [Suspect]
     Active Substance: PORACTANT ALFA
     Indication: MECONIUM ASPIRATION SYNDROME
     Dosage: 200 MILLIGRAM, (1X)
     Route: 007
     Dates: start: 20200508, end: 20200508

REACTIONS (2)
  - Neonatal hypoxia [Recovered/Resolved]
  - Off label use [Recovered/Resolved]

NARRATIVE: CASE EVENT DATE: 20200508
